FAERS Safety Report 4381446-7 (Version None)
Quarter: 2004Q2

REPORT INFORMATION
  Report Type: 
  Country: None (occurrence: None)
  Receive Date: 20040618
  Receipt Date: 20040618
  Transmission Date: 20050107
  Serious: Yes (Hospitalization)
  Sender: FDA-Public Use
  Company Number: None

PATIENT
  Age: 36 Year
  Sex: Male
  Weight: 117.8 kg

DRUGS (2)
  1. BUMEX [Suspect]
     Indication: DYSPNOEA
     Dosage: 1 MG 8 HOURS INTRAVENOUS
     Route: 042
     Dates: start: 20040505, end: 20040507
  2. TORADOL [Suspect]
     Indication: INCISION SITE COMPLICATION
     Dosage: 15 MG 6 HOURS INTRAVENOUS
     Route: 042
     Dates: start: 20040505, end: 20040507

REACTIONS (3)
  - HAEMODIALYSIS [None]
  - MEDICATION ERROR [None]
  - RENAL FAILURE ACUTE [None]
